FAERS Safety Report 8621902-6 (Version None)
Quarter: 2012Q3

REPORT INFORMATION
  Report Type: 
  Country: None (occurrence: None)
  Receive Date: 20120822
  Receipt Date: 20120822
  Transmission Date: 20120928
  Serious: Yes (Life-Threatening)
  Sender: FDA-Public Use
  Company Number: None

PATIENT
  Age: 80 Year
  Sex: Male

DRUGS (15)
  1. TRIAMCINOLONE [Concomitant]
  2. M.V.I. [Concomitant]
  3. VYTORIN [Concomitant]
  4. LOMOTIL [Concomitant]
  5. NASAL FLUTICASONE [Concomitant]
  6. QUESTRAN PRN [Concomitant]
  7. AMBIEN [Concomitant]
  8. SINGULAIR [Concomitant]
  9. ASPIRIN [Concomitant]
  10. BENICAR [Suspect]
     Indication: HYPERTENSION
     Dosage: 40 MG DAILY PO
     Route: 048
  11. POTASSIUM CHLORIDE [Concomitant]
  12. ELOCON [Concomitant]
  13. ALBUTEROL PRN [Concomitant]
  14. PATANOL [Concomitant]
  15. ANUSOL [Concomitant]

REACTIONS (4)
  - DIARRHOEA [None]
  - HYPOTENSION [None]
  - COELIAC DISEASE [None]
  - HYPOKALAEMIA [None]
